FAERS Safety Report 4953653-3 (Version None)
Quarter: 2006Q1

REPORT INFORMATION
  Report Type: 
  Country: None (occurrence: None)
  Receive Date: 20060324
  Receipt Date: 20050920
  Transmission Date: 20060701
  Serious: Yes (Hospitalization)
  Sender: FDA-Public Use
  Company Number: US-MERCK-0509USA03090

PATIENT
  Age: 56 Year
  Sex: Female
  Weight: 95 kg

DRUGS (2)
  1. VIOXX [Suspect]
     Indication: ARTHRITIS
     Route: 048
     Dates: start: 20000101, end: 20040501
  2. VIOXX [Suspect]
     Route: 048
     Dates: start: 20000101, end: 20040501

REACTIONS (3)
  - CARDIAC DISORDER [None]
  - MYOCARDIAL INFARCTION [None]
  - POLYTRAUMATISM [None]
